FAERS Safety Report 11020587 (Version 1)
Quarter: 2015Q2

REPORT INFORMATION
  Report Type: Spontaneous
  Country: FR (occurrence: FR)
  Receive Date: 20150413
  Receipt Date: 20150413
  Transmission Date: 20150821
  Serious: Yes (Hospitalization)
  Sender: FDA-Public Use
  Company Number: FR-ROCHE-1561721

PATIENT
  Age: 97 Year
  Sex: Female

DRUGS (11)
  1. CACIT VITAMINE D3 [Concomitant]
     Active Substance: CALCIUM CARBONATE\CHOLECALCIFEROL
     Dosage: 1000 MG/ 880 IU
     Route: 048
     Dates: start: 201205
  2. LASILIX FAIBLE [Suspect]
     Active Substance: FUROSEMIDE
     Indication: PRODUCT USED FOR UNKNOWN INDICATION
     Dosage: RECENT INCEASE IN DOSE TO 60 MG + 20 MG DAILY
     Route: 065
     Dates: start: 201405, end: 20150217
  3. ROCEPHINE [Suspect]
     Active Substance: CEFTRIAXONE SODIUM
     Indication: PRODUCT USED FOR UNKNOWN INDICATION
     Route: 058
     Dates: start: 20150206, end: 20150215
  4. COUMADINE [Concomitant]
     Active Substance: WARFARIN SODIUM
     Route: 048
     Dates: start: 20150221
  5. BISOPROLOL [Concomitant]
     Active Substance: BISOPROLOL
     Route: 048
     Dates: start: 201403
  6. LAMALINE [Concomitant]
     Active Substance: ACETAMINOPHEN\CAFFEINE\OPIUM
     Route: 048
     Dates: start: 201410
  7. PERINDOPRIL [Suspect]
     Active Substance: PERINDOPRIL
     Indication: PRODUCT USED FOR UNKNOWN INDICATION
     Route: 048
     Dates: start: 201205, end: 20150217
  8. COUMADINE [Concomitant]
     Active Substance: WARFARIN SODIUM
     Route: 048
     Dates: start: 201201
  9. HEMIGOXINE NATIVELLE [Concomitant]
     Active Substance: DIGOXIN
     Dosage: TREATMENT DURATION =3 YEARS
     Route: 048
     Dates: start: 201201, end: 20150217
  10. EDUCTYL [Concomitant]
     Active Substance: POTASSIUM BITARTRATE\SODIUM BICARBONATE
     Route: 054
     Dates: start: 201410
  11. SOLUPRED (FRANCE) [Concomitant]
     Active Substance: PREDNISOLONE
     Route: 048
     Dates: start: 20150206, end: 20150209

REACTIONS (3)
  - Dehydration [Recovered/Resolved]
  - Acute kidney injury [Recovered/Resolved]
  - Overdose [Unknown]

NARRATIVE: CASE EVENT DATE: 20150216
